FAERS Safety Report 4451482-0 (Version None)
Quarter: 2004Q3

REPORT INFORMATION
  Report Type: 
  Country: None (occurrence: None)
  Receive Date: 20040915
  Receipt Date: 20040907
  Transmission Date: 20050211
  Serious: Yes (Other)
  Sender: FDA-Public Use
  Company Number: 2004232302US

PATIENT
  Age: 66 Year
  Sex: Female

DRUGS (4)
  1. PROVERA (MEDROXYPROGESTERONE ACETATE) TABLET, 2.5-10 MG [Suspect]
     Dates: start: 19910801
  2. PREMARIN [Suspect]
     Dates: start: 19910801, end: 19960101
  3. CYCRIN [Suspect]
     Dates: end: 19960101
  4. PREMPRO [Suspect]
     Dates: start: 19960101, end: 20021101

REACTIONS (2)
  - BREAST CANCER FEMALE [None]
  - BREAST CANCER IN SITU [None]
